FAERS Safety Report 8083235-9 (Version None)
Quarter: 2012Q1

REPORT INFORMATION
  Report Type: 
  Country: None (occurrence: None)
  Receive Date: 20120127
  Receipt Date: 20110228
  Transmission Date: 20120608
  Serious: No
  Sender: FDA-Public Use
  Company Number: US-ABBOTT-11P-163-0709050-00

PATIENT
  Sex: Female
  Weight: 68.1 kg

DRUGS (8)
  1. HUMIRA [Suspect]
     Route: 058
     Dates: start: 20101001
  2. METHOTREXATE [Concomitant]
     Indication: RHEUMATOID ARTHRITIS
     Dosage: STOPPED WHEN WENT TO INDIA
     Route: 048
     Dates: end: 20100401
  3. HUMIRA [Suspect]
     Indication: RHEUMATOID ARTHRITIS
     Dosage: STOPPED WHEN WENT ON VACATION TO INDIA
     Route: 058
     Dates: end: 20100401
  4. UNKNOWN NATURAL VITAMINS [Concomitant]
     Indication: PRODUCT USED FOR UNKNOWN INDICATION
  5. UNKNOWN OTHER SUPPLEMENTS [Concomitant]
     Indication: PRODUCT USED FOR UNKNOWN INDICATION
  6. LEVOTHYROXINE SODIUM [Concomitant]
     Indication: HYPOTHYROIDISM
     Dosage: 75 MCG 2 DAYS A WEEK, AND 50 MCG THE REST OF WEEK.
  7. METHOTREXATE [Concomitant]
     Dosage: STOPPED WHEN WENT TO INDIA.
     Route: 048
     Dates: start: 20101001
  8. NATURAL TEARS [Concomitant]
     Indication: DRY EYE
     Dosage: AS NEEDED

REACTIONS (9)
  - NECK PAIN [None]
  - CYST [None]
  - ARTHRITIS [None]
  - RASH [None]
  - INCORRECT ROUTE OF DRUG ADMINISTRATION [None]
  - DRUG DOSE OMISSION [None]
  - DYSPEPSIA [None]
  - INCORRECT DOSE ADMINISTERED [None]
  - WRONG TECHNIQUE IN DRUG USAGE PROCESS [None]
